FAERS Safety Report 21630750 (Version 1)
Quarter: 2022Q4

REPORT INFORMATION
  Report Type: Spontaneous
  Country: BR (occurrence: BR)
  Receive Date: 20221123
  Receipt Date: 20221123
  Transmission Date: 20230113
  Serious: Yes (Hospitalization, Other)
  Sender: FDA-Public Use
  Company Number: BR-NOVOPROD-980955

PATIENT
  Age: 78 Year
  Sex: Female
  Weight: 60 kg

DRUGS (3)
  1. PIOGLITAZONE HYDROCHLORIDE [Concomitant]
     Active Substance: PIOGLITAZONE HYDROCHLORIDE
     Indication: Product used for unknown indication
     Dosage: 30 MG, QD
  2. NAPRIX A [Concomitant]
     Indication: Hypertension
     Dosage: 15 MG, QD
  3. INSULIN HUMAN [Suspect]
     Active Substance: INSULIN HUMAN
     Indication: Diabetes mellitus
     Dosage: 10 IU, QD (IN THE MORNING)

REACTIONS (5)
  - Fibula fracture [Recovered/Resolved]
  - Fall [Unknown]
  - Hypoglycaemia [Unknown]
  - Postoperative wound infection [Recovered/Resolved]
  - Hyperglycaemia [Recovered/Resolved]
